FAERS Safety Report 5701766-0 (Version None)
Quarter: 2008Q2

REPORT INFORMATION
  Report Type: 
  Country: None (occurrence: None)
  Receive Date: 20080410
  Receipt Date: 20080410
  Transmission Date: 20081010
  Serious: Yes (Life-Threatening)
  Sender: FDA-Public Use
  Company Number: None

PATIENT
  Sex: Female
  Weight: 45.3597 kg

DRUGS (1)
  1. AMIODARONE HCL [Suspect]
     Indication: HEART RATE INCREASED
     Dosage: 200 MG 1 X DAY
     Dates: start: 20030423, end: 20061101

REACTIONS (7)
  - DRUG TOXICITY [None]
  - LUNG DISORDER [None]
  - PAIN OF SKIN [None]
  - PRURITUS [None]
  - RASH [None]
  - THERMAL BURN [None]
  - URTICARIA [None]
